FAERS Safety Report 19732921 (Version 1)
Quarter: 2021Q3

REPORT INFORMATION
  Report Type: Other
  Country: FR (occurrence: FR)
  Receive Date: 20210823
  Receipt Date: 20210823
  Transmission Date: 20211014
  Serious: Yes (Other)
  Sender: FDA-Public Use
  Company Number: FR-CELLTRION INC.-2021FR011084

PATIENT

DRUGS (6)
  1. RITUXIMAB (UNKNOWN) [Suspect]
     Active Substance: RITUXIMAB
     Indication: BURKITT^S LYMPHOMA
     Dosage: UNK
     Route: 065
     Dates: start: 20200401, end: 20201001
  2. CARBOPLATIN. [Suspect]
     Active Substance: CARBOPLATIN
     Indication: BURKITT^S LYMPHOMA RECURRENT
     Dosage: UNK
     Route: 065
     Dates: start: 20201002, end: 20210131
  3. RITUXIMAB (UNKNOWN) [Suspect]
     Active Substance: RITUXIMAB
     Indication: BURKITT^S LYMPHOMA RECURRENT
     Dosage: UNK
     Route: 065
     Dates: start: 20201002, end: 20210131
  4. IDARUBICINE [Suspect]
     Active Substance: IDARUBICIN
     Indication: BURKITT^S LYMPHOMA RECURRENT
     Dosage: UNK
     Route: 065
     Dates: start: 20201002, end: 20210131
  5. VINCRISTINE [Suspect]
     Active Substance: VINCRISTINE
     Indication: BURKITT^S LYMPHOMA RECURRENT
     Dosage: UNK
     Route: 065
     Dates: start: 20201002, end: 20210131
  6. IFOSFAMIDE. [Suspect]
     Active Substance: IFOSFAMIDE
     Indication: BURKITT^S LYMPHOMA RECURRENT
     Dosage: UNK
     Route: 065
     Dates: start: 20201002, end: 20210131

REACTIONS (3)
  - Leukopenia [Unknown]
  - Anaemia [Unknown]
  - Off label use [Unknown]
